FAERS Safety Report 19268940 (Version 1)
Quarter: 2021Q2

REPORT INFORMATION
  Report Type: Spontaneous
  Country: US (occurrence: US)
  Receive Date: 20210518
  Receipt Date: 20210518
  Transmission Date: 20210717
  Serious: No
  Sender: FDA-Public Use
  Company Number: None

PATIENT
  Age: 47 Year
  Sex: Male

DRUGS (1)
  1. HYDROCHLOROTHIAZIDE /LISINOPRIL (HYDROLORTHIAZIDE 12.5MG/LISINOPRIL 20 [Suspect]
     Active Substance: HYDROCHLOROTHIAZIDE\LISINOPRIL
     Indication: HYPERTENSION
     Dates: start: 20210112, end: 20210208

REACTIONS (3)
  - Dizziness [None]
  - Fall [None]
  - Syncope [None]

NARRATIVE: CASE EVENT DATE: 20210208
